FAERS Safety Report 23019620 (Version 1)
Quarter: 2023Q4

REPORT INFORMATION
  Report Type: Spontaneous
  Country: GB (occurrence: GB)
  Receive Date: 20231003
  Receipt Date: 20231003
  Transmission Date: 20240110
  Serious: Yes (Other)
  Sender: FDA-Public Use
  Company Number: GB-MHRA-MED-202309201727069790-DYBMZ

PATIENT
  Sex: Female
  Weight: 82 kg

DRUGS (1)
  1. AMLODIPINE [Suspect]
     Active Substance: AMLODIPINE BESYLATE
     Indication: Essential hypertension
     Dosage: 10MG DAILY; ;
     Dates: start: 20230823, end: 20230823

REACTIONS (1)
  - Gingival hypertrophy [Unknown]

NARRATIVE: CASE EVENT DATE: 20230823
